FAERS Safety Report 7426424-6 (Version None)
Quarter: 2011Q2

REPORT INFORMATION
  Report Type: 
  Country: None (occurrence: None)
  Receive Date: 20110420
  Receipt Date: 20110414
  Transmission Date: 20111010
  Serious: Yes (Death)
  Sender: FDA-Public Use
  Company Number: US-AMGEN-USASP2010000968

PATIENT
  Sex: Male
  Weight: 11.3 kg

DRUGS (7)
  1. ALBUMIN (HUMAN) [Concomitant]
  2. NOVOSEVEN [Concomitant]
  3. LASIX [Concomitant]
  4. BLOOD AND RELATED PRODUCTS [Concomitant]
  5. THROMBIN LOCAL SOLUTION [Concomitant]
  6. NPLATE [Suspect]
     Dosage: 12 A?G/KG, UNK
     Dates: start: 20100510, end: 20100511
  7. NPLATE [Suspect]
     Dates: start: 20100426, end: 20100503

REACTIONS (1)
  - HAEMORRHAGE INTRACRANIAL [None]
